FAERS Safety Report 11077974 (Version 1)
Quarter: 2015Q2

REPORT INFORMATION
  Report Type: Spontaneous
  Country: US (occurrence: None)
  Receive Date: 20150429
  Receipt Date: 20150429
  Transmission Date: 20150821
  Serious: Yes (Hospitalization)
  Sender: FDA-Public Use
  Company Number: None

PATIENT
  Age: 46 Year
  Sex: Male
  Weight: 220 kg

DRUGS (2)
  1. HYDROCHLOROTHIAZIDE AND LISINOPRIL [Concomitant]
     Active Substance: HYDROCHLOROTHIAZIDE\LISINOPRIL
  2. LIPITOR [Suspect]
     Active Substance: ATORVASTATIN CALCIUM
     Indication: BLOOD CHOLESTEROL
     Route: 048
     Dates: start: 20070401, end: 20070602

REACTIONS (3)
  - Rhabdomyolysis [None]
  - Impaired work ability [None]
  - Hip surgery [None]

NARRATIVE: CASE EVENT DATE: 20070601
